FAERS Safety Report 22281171 (Version 2)
Quarter: 2023Q2

REPORT INFORMATION
  Report Type: Report from Study
  Country: BR (occurrence: BR)
  Receive Date: 20230504
  Receipt Date: 20230531
  Transmission Date: 20230721
  Serious: Yes (Hospitalization, Other)
  Sender: FDA-Public Use
  Company Number: BR-CELLTRION INC.-2023BR009090

PATIENT

DRUGS (3)
  1. INFLIXIMAB [Suspect]
     Active Substance: INFLIXIMAB
     Indication: Crohn^s disease
     Dosage: EVERY 8 WEEKS APPLY 5MG PER KG
     Route: 042
     Dates: start: 20230425
  2. AZATHIOPRINE [Concomitant]
     Active Substance: AZATHIOPRINE
     Indication: Crohn^s disease
     Dosage: UNK, BID
     Route: 048
  3. PREDNISONE [Concomitant]
     Active Substance: PREDNISONE
     Indication: Crohn^s disease
     Dosage: BID, START: 3 MONTHS
     Route: 048

REACTIONS (17)
  - Intestinal fistula [Unknown]
  - Crohn^s disease [Unknown]
  - Anal fistula [Unknown]
  - Secretion discharge [Unknown]
  - Muscle spasms [Unknown]
  - Haemorrhage [Unknown]
  - Urinary tract infection [Unknown]
  - Pain [Unknown]
  - Nausea [Unknown]
  - Diarrhoea [Unknown]
  - Haemorrhage [Unknown]
  - Stomatitis [Unknown]
  - Secretion discharge [Unknown]
  - Diarrhoea [Unknown]
  - Treatment delayed [Unknown]
  - Product supply issue [Unknown]
  - Intentional dose omission [Unknown]
